FAERS Safety Report 14798274 (Version 1)
Quarter: 2018Q2

REPORT INFORMATION
  Report Type: Report from Study
  Country: DE (occurrence: DE)
  Receive Date: 20180424
  Receipt Date: 20180424
  Transmission Date: 20180711
  Serious: Yes (Other)
  Sender: FDA-Public Use
  Company Number: DE-ROCHE-2112596

PATIENT
  Age: 74 Year
  Sex: Female
  Weight: 62 kg

DRUGS (27)
  1. PACLITAXEL. [Concomitant]
     Active Substance: PACLITAXEL
     Route: 042
     Dates: start: 20140731
  2. PACLITAXEL. [Concomitant]
     Active Substance: PACLITAXEL
     Route: 042
     Dates: start: 20140930
  3. FUROSEMID [Concomitant]
     Active Substance: FUROSEMIDE
     Route: 048
     Dates: start: 20140704, end: 20140729
  4. CITALOPRAM [Concomitant]
     Active Substance: CITALOPRAM HYDROBROMIDE
     Indication: DEPRESSION
     Route: 048
     Dates: start: 20130715, end: 20150501
  5. KREON [Concomitant]
     Active Substance: PANCRELIPASE
     Route: 048
     Dates: start: 20140423, end: 20150501
  6. CARBOPLATIN. [Concomitant]
     Active Substance: CARBOPLATIN
     Route: 042
     Dates: start: 20140710
  7. CARBOPLATIN. [Concomitant]
     Active Substance: CARBOPLATIN
     Route: 042
     Dates: start: 20140930
  8. VITAMIN B12 [Concomitant]
     Active Substance: CYANOCOBALAMIN
     Route: 048
     Dates: start: 20140704, end: 20141002
  9. PANTOZOL [Concomitant]
     Active Substance: PANTOPRAZOLE SODIUM
     Route: 048
     Dates: start: 20140704, end: 20150501
  10. CARBOPLATIN. [Concomitant]
     Active Substance: CARBOPLATIN
     Route: 042
     Dates: start: 20140908
  11. PACLITAXEL. [Concomitant]
     Active Substance: PACLITAXEL
     Route: 042
     Dates: start: 20140908
  12. METRONIDAZOLE. [Concomitant]
     Active Substance: METRONIDAZOLE
     Route: 042
     Dates: start: 20140704, end: 20140712
  13. LYRICA [Concomitant]
     Active Substance: PREGABALIN
     Indication: DEPRESSION
     Route: 048
     Dates: start: 20141102, end: 20150501
  14. CARBOPLATIN. [Concomitant]
     Active Substance: CARBOPLATIN
     Route: 042
     Dates: start: 20140731
  15. PACLITAXEL. [Concomitant]
     Active Substance: PACLITAXEL
     Indication: OVARIAN CANCER
     Route: 042
     Dates: start: 20140618
  16. PACLITAXEL. [Concomitant]
     Active Substance: PACLITAXEL
     Route: 042
     Dates: start: 20140710
  17. CEFUROXIM [Concomitant]
     Active Substance: CEFUROXIME
     Route: 048
     Dates: start: 20140712, end: 20140713
  18. CLEXANE [Concomitant]
     Active Substance: ENOXAPARIN SODIUM
     Indication: THROMBOSIS PROPHYLAXIS
     Route: 058
     Dates: start: 20140704, end: 20140715
  19. BEVACIZUMAB. [Suspect]
     Active Substance: BEVACIZUMAB
     Indication: OVARIAN CANCER
     Route: 042
     Dates: start: 20140731, end: 20140731
  20. CARBOPLATIN. [Concomitant]
     Active Substance: CARBOPLATIN
     Indication: OVARIAN CANCER
     Route: 042
     Dates: start: 20140618
  21. CEFUROXIM [Concomitant]
     Active Substance: CEFUROXIME
     Route: 042
     Dates: start: 20140704, end: 20140712
  22. METRONIDAZOLE. [Concomitant]
     Active Substance: METRONIDAZOLE
     Route: 048
     Dates: start: 20140712, end: 20140713
  23. CLEXANE [Concomitant]
     Active Substance: ENOXAPARIN SODIUM
     Route: 058
     Dates: start: 20140716, end: 20141102
  24. ELIQUIS [Concomitant]
     Active Substance: APIXABAN
     Indication: THROMBOSIS PROPHYLAXIS
     Route: 048
     Dates: start: 20141002, end: 20150501
  25. METOPROLOL. [Concomitant]
     Active Substance: METOPROLOL
     Route: 048
     Dates: start: 20140516, end: 20150501
  26. FOLSAN [Concomitant]
     Active Substance: FOLIC ACID
     Indication: FOLATE DEFICIENCY
     Route: 048
     Dates: start: 20140704, end: 20150501
  27. CHOLECALCIFEROL [Concomitant]
     Active Substance: CHOLECALCIFEROL
     Route: 048
     Dates: start: 20141006, end: 20150501

REACTIONS (10)
  - Infection [Recovered/Resolved]
  - Decreased appetite [Unknown]
  - Constipation [Unknown]
  - Vitamin D deficiency [Unknown]
  - Pain [Unknown]
  - Faecaloma [Recovered/Resolved]
  - Oesophageal candidiasis [Recovered/Resolved]
  - Vomiting [Unknown]
  - Anaemia [Recovered/Resolved]
  - Neuralgia [Recovered/Resolved]

NARRATIVE: CASE EVENT DATE: 20141002
